FAERS Safety Report 24749732 (Version 1)
Quarter: 2024Q4

REPORT INFORMATION
  Report Type: Spontaneous
  Country: US (occurrence: US)
  Receive Date: 20241218
  Receipt Date: 20241218
  Transmission Date: 20250115
  Serious: Yes (Hospitalization, Other)
  Sender: ELI LILLY AND COMPANY
  Company Number: US-ELI_LILLY_AND_COMPANY-US202412010404

PATIENT
  Age: 69 Year
  Sex: Male

DRUGS (8)
  1. HUMULIN 70/30 [Suspect]
     Active Substance: INSULIN HUMAN
     Indication: Product used for unknown indication
     Dosage: 130 U, DAILY
     Route: 065
  2. HUMULIN 70/30 [Suspect]
     Active Substance: INSULIN HUMAN
     Indication: Product used for unknown indication
     Dosage: 130 U, DAILY
     Route: 065
  3. HUMULIN 70/30 [Suspect]
     Active Substance: INSULIN HUMAN
     Indication: Product used for unknown indication
     Dosage: 130 U, DAILY
     Route: 065
  4. HUMULIN 70/30 [Suspect]
     Active Substance: INSULIN HUMAN
     Dosage: 130 U, DAILY
     Route: 065
  5. HUMULIN 70/30 [Suspect]
     Active Substance: INSULIN HUMAN
     Dosage: 130 U, DAILY
     Route: 065
  6. HUMULIN 70/30 [Suspect]
     Active Substance: INSULIN HUMAN
     Dosage: 130 U, DAILY
     Route: 065
  7. HUMULIN 70/30 [Suspect]
     Active Substance: INSULIN HUMAN
     Dosage: 130 U, DAILY
     Route: 065
  8. METFORMIN [Concomitant]
     Active Substance: METFORMIN HYDROCHLORIDE
     Indication: Product used for unknown indication

REACTIONS (16)
  - Fall [Unknown]
  - Limb injury [Unknown]
  - Umbilical hernia [Unknown]
  - Abdominal wall disorder [Unknown]
  - Gait disturbance [Unknown]
  - Arthritis [Unknown]
  - Neuropathy peripheral [Unknown]
  - Localised infection [Unknown]
  - Skin ulcer [Unknown]
  - Foot fracture [Unknown]
  - Ulcer [Unknown]
  - Ulcer haemorrhage [Unknown]
  - Varicose vein [Unknown]
  - Poor peripheral circulation [Unknown]
  - Osteoporosis [Unknown]
  - Accidental underdose [Unknown]
